FAERS Safety Report 14758050 (Version 1)
Quarter: 2018Q2

REPORT INFORMATION
  Report Type: Spontaneous
  Country: US (occurrence: US)
  Receive Date: 20180413
  Receipt Date: 20180413
  Transmission Date: 20180711
  Serious: Yes (Other)
  Sender: FDA-Public Use
  Company Number: US-GLAXOSMITHKLINE-US2018GSK063963

PATIENT
  Sex: Female

DRUGS (1)
  1. WELLBUTRIN XL [Suspect]
     Active Substance: BUPROPION HYDROCHLORIDE

REACTIONS (5)
  - Haemolytic anaemia [Unknown]
  - Toxicity to various agents [Unknown]
  - Visual impairment [Unknown]
  - Adverse drug reaction [Not Recovered/Not Resolved]
  - Eye colour change [Unknown]
